FAERS Safety Report 24705303 (Version 1)
Quarter: 2024Q4

REPORT INFORMATION
  Report Type: Spontaneous
  Country: US (occurrence: US)
  Receive Date: 20241206
  Receipt Date: 20241206
  Transmission Date: 20250115
  Serious: Yes (Other)
  Sender: ALVOGEN
  Company Number: None

PATIENT

DRUGS (9)
  1. LEVOTHYROXINE SODIUM [Suspect]
     Active Substance: LEVOTHYROXINE SODIUM
     Indication: Product used for unknown indication
     Dates: end: 2021
  2. LEVOTHYROXINE SODIUM [Suspect]
     Active Substance: LEVOTHYROXINE SODIUM
     Indication: Product used for unknown indication
     Dates: end: 2022
  3. LEVOTHYROXINE SODIUM [Suspect]
     Active Substance: LEVOTHYROXINE SODIUM
     Indication: Product used for unknown indication
     Dates: start: 2022, end: 2023
  4. LEVOTHYROXINE SODIUM [Suspect]
     Active Substance: LEVOTHYROXINE SODIUM
     Indication: Product used for unknown indication
     Dosage: EXPIRATION DATE: 31-DEC-2024?90 TABLETS, 100 MCG
     Dates: start: 20230204, end: 20230209
  5. LEVOTHYROXINE SODIUM [Suspect]
     Active Substance: LEVOTHYROXINE SODIUM
     Indication: Product used for unknown indication
     Dosage: ONE HALF 75MCG
     Dates: start: 20230213, end: 20230216
  6. LEVOTHYROXINE SODIUM [Suspect]
     Active Substance: LEVOTHYROXINE SODIUM
     Indication: Product used for unknown indication
     Dosage: ONE HALF 75MCG, TOOK IN MORNING
     Dates: start: 20230220, end: 20230220
  7. LEVOTHYROXINE SODIUM [Suspect]
     Active Substance: LEVOTHYROXINE SODIUM
     Indication: Product used for unknown indication
     Dates: start: 20230224, end: 20230326
  8. LEVOTHYROXINE SODIUM [Suspect]
     Active Substance: LEVOTHYROXINE SODIUM
     Indication: Product used for unknown indication
     Dates: start: 20230326, end: 20230327
  9. LEVOTHYROXINE [Concomitant]
     Active Substance: LEVOTHYROXINE
     Indication: Product used for unknown indication
     Dates: start: 2021

REACTIONS (21)
  - Hyperthyroidism [Unknown]
  - Oesophageal pain [Unknown]
  - Chest discomfort [Unknown]
  - Gastrooesophageal reflux disease [Unknown]
  - Dizziness [Unknown]
  - Throat irritation [Unknown]
  - Blood thyroid stimulating hormone decreased [Unknown]
  - Myalgia [Unknown]
  - Asthenia [Unknown]
  - Frequent bowel movements [Unknown]
  - Alopecia [Unknown]
  - Hot flush [Unknown]
  - Fatigue [Unknown]
  - Palpitations [Unknown]
  - Product formulation issue [Unknown]
  - Product quality issue [Unknown]
  - Product measured potency issue [Unknown]
  - Product substitution issue [Unknown]
  - Recalled product administered [Unknown]
  - Wrong technique in product usage process [Unknown]
  - Overdose [Unknown]

NARRATIVE: CASE EVENT DATE: 20230206
